FAERS Safety Report 5061290-8 (Version None)
Quarter: 2006Q3

REPORT INFORMATION
  Report Type: 
  Country: None (occurrence: None)
  Receive Date: 20060720
  Receipt Date: 20060720
  Transmission Date: 20061208
  Serious: Yes (Hospitalization)
  Sender: FDA-Public Use
  Company Number: None

PATIENT
  Age: 72 Year
  Sex: Male
  Weight: 80.2867 kg

DRUGS (28)
  1. CITALOPRAM HYDROBROMIDE [Suspect]
     Dosage: 20MG BID
     Dates: start: 20060410, end: 20060427
  2. RISPERIDONE [Suspect]
     Dosage: INCREASED 4/10 TO 2MG AM 4 MG HS
  3. BUSPIRONE HCL [Suspect]
     Dosage: 5 MG QAM
  4. TERAZOSIN HCL [Suspect]
     Dosage: 5 MG QHS
  5. FUROSEMIDE [Suspect]
     Dosage: 20 MG DAILY
  6. ENALAPRIL MALEATE [Suspect]
     Dosage: 2.5 MG DAILY
  7. CLONAZEPAM [Suspect]
     Dosage: 0.5 - 1MG QHS PRN
  8. METOPROLOL [Suspect]
     Dosage: 12.5 MG BID
  9. CLOPIDOGREL [Concomitant]
  10. SIMVASTATIN [Concomitant]
  11. CYPROHEPTADINE HCL [Concomitant]
  12. DOCUSATE CA [Concomitant]
  13. CALCIUM GLUCONATE [Concomitant]
  14. DOXYCYCLINE HYCLATE [Concomitant]
  15. CALCITONIN [Concomitant]
  16. ALBUTEROL SPIROS [Concomitant]
  17. AMANTADINE HCL [Concomitant]
  18. BUSPIRONE HCL [Concomitant]
  19. CLONAZEPAM [Concomitant]
  20. CITALOPRAM HYDROBROMIDE TAB [Concomitant]
  21. PAROXETINE HCL [Concomitant]
  22. RISPERIDONE [Concomitant]
  23. METOPROLOL TARTRATE [Concomitant]
  24. TERAZOSIN HCL [Concomitant]
  25. FUROSEMIDE [Concomitant]
  26. ENALAPRIL MALEATE [Concomitant]
  27. PSYLLIUM SF ORAL PWD PKT [Concomitant]
  28. OMEPRAZOLE [Concomitant]

REACTIONS (4)
  - ASTHENIA [None]
  - DIPLOPIA [None]
  - HYPOTENSION [None]
  - TREATMENT NONCOMPLIANCE [None]
